FAERS Safety Report 4340281-6 (Version None)
Quarter: 2004Q2

REPORT INFORMATION
  Report Type: 
  Country: None (occurrence: None)
  Receive Date: 20040412
  Receipt Date: 20040405
  Transmission Date: 20050107
  Serious: Yes (Life-Threatening)
  Sender: FDA-Public Use
  Company Number: 2004-04-0122

PATIENT
  Sex: Male

DRUGS (1)
  1. NASONEX [Suspect]
     Dosage: NASAL SPRAY
     Route: 045
     Dates: start: 20040301

REACTIONS (2)
  - ANAPHYLACTIC REACTION [None]
  - RASH GENERALISED [None]
